FAERS Safety Report 18462137 (Version 1)
Quarter: 2020Q4

REPORT INFORMATION
  Report Type: Spontaneous
  Country: US (occurrence: US)
  Receive Date: 20201103
  Receipt Date: 20201103
  Transmission Date: 20210114
  Serious: Yes (Death)
  Sender: FDA-Public Use
  Company Number: None

PATIENT
  Age: 73 Year
  Sex: Male

DRUGS (1)
  1. SPIRONOLACTONE. [Suspect]
     Active Substance: SPIRONOLACTONE

REACTIONS (4)
  - Confusional state [None]
  - Dyspnoea [None]
  - Hepatic encephalopathy [None]
  - Muscular weakness [None]

NARRATIVE: CASE EVENT DATE: 20200116
